FAERS Safety Report 10500633 (Version 2)
Quarter: 2014Q4

REPORT INFORMATION
  Report Type: Report from Study
  Country: US (occurrence: US)
  Receive Date: 20141006
  Receipt Date: 20141006
  Transmission Date: 20150528
  Serious: No
  Sender: FDA-Public Use
  Company Number: US-AMGEN INC.-USASP2014059964

PATIENT
  Age: 86 Year
  Sex: Female
  Weight: 85.26 kg

DRUGS (7)
  1. VITAMINS WITH MINERALS [Concomitant]
     Active Substance: MINERALS\VITAMINS
  2. PROLIA [Suspect]
     Active Substance: DENOSUMAB
     Indication: PRODUCT USED FOR UNKNOWN INDICATION
     Dosage: UNK
     Route: 058
     Dates: start: 201402
  3. LEXAPRO [Concomitant]
     Active Substance: ESCITALOPRAM OXALATE
  4. OMEPRAZOLE. [Concomitant]
     Active Substance: OMEPRAZOLE
  5. CALCIUM [Concomitant]
     Active Substance: CALCIUM
  6. FISH OIL [Concomitant]
     Active Substance: FISH OIL
  7. XANAX [Concomitant]
     Active Substance: ALPRAZOLAM

REACTIONS (4)
  - Muscle spasms [Unknown]
  - Muscular weakness [Unknown]
  - Gait disturbance [Unknown]
  - Pain in extremity [Unknown]
